FAERS Safety Report 11257965 (Version 1)
Quarter: 2015Q3

REPORT INFORMATION
  Report Type: Report from Study
  Country: CA (occurrence: CA)
  Receive Date: 20150710
  Receipt Date: 20150710
  Transmission Date: 20151125
  Serious: Yes (Other)
  Sender: FDA-Public Use
  Company Number: CA-JNJFOC-20150703442

PATIENT
  Sex: Female

DRUGS (1)
  1. SIMPONI [Suspect]
     Active Substance: GOLIMUMAB
     Indication: RHEUMATOID ARTHRITIS
     Route: 058
     Dates: start: 20150506, end: 20150706

REACTIONS (3)
  - Malaise [Unknown]
  - Adverse drug reaction [Unknown]
  - Toxic shock syndrome [Unknown]

NARRATIVE: CASE EVENT DATE: 2015
